FAERS Safety Report 10078956 (Version 3)
Quarter: 2014Q2

REPORT INFORMATION
  Report Type: Spontaneous
  Country: US (occurrence: US)
  Receive Date: 20140415
  Receipt Date: 20140626
  Transmission Date: 20141212
  Serious: Yes (Hospitalization, Other)
  Sender: FDA-Public Use
  Company Number: US-009507513-1404USA008028

PATIENT
  Sex: Male
  Weight: 80.73 kg

DRUGS (7)
  1. JANUVIA [Suspect]
     Indication: TYPE 2 DIABETES MELLITUS
     Dosage: 100 MG, BID
     Route: 048
     Dates: start: 20130814, end: 20131204
  2. JANUVIA [Suspect]
     Dosage: 50 MG, QD
     Route: 048
  3. JANUMET [Suspect]
     Indication: TYPE 2 DIABETES MELLITUS
     Dosage: 50-1000 MG, BID
     Route: 048
     Dates: start: 20090904, end: 20120917
  4. JANUMET [Suspect]
     Dosage: 50-500MG, BID
     Route: 048
     Dates: start: 20120917, end: 20130814
  5. VITAMINS (UNSPECIFIED) [Concomitant]
     Dosage: UNK
     Dates: start: 200906
  6. GLIPIZIDE [Concomitant]
     Indication: TYPE 2 DIABETES MELLITUS
     Dosage: 5-10 MG AM + 0-5 MG PM
     Route: 048
  7. CARDIZEM [Concomitant]
     Dosage: 240-360 MG, QD
     Route: 048

REACTIONS (46)
  - Pancreatic carcinoma metastatic [Unknown]
  - Metastases to bone [Unknown]
  - Fall [Unknown]
  - Metastatic neoplasm [Unknown]
  - Intestinal resection [Unknown]
  - Dehydration [Unknown]
  - Hepatic cyst [Unknown]
  - Haemangioma of liver [Unknown]
  - Depression [Unknown]
  - Allergic cough [Unknown]
  - Asthma [Unknown]
  - Decreased appetite [Unknown]
  - Pulmonary mass [Unknown]
  - Spinal osteoarthritis [Unknown]
  - Nephrolithiasis [Unknown]
  - Diverticulum intestinal [Unknown]
  - Scan adrenal gland abnormal [Unknown]
  - Renal cyst [Unknown]
  - Hiatus hernia [Unknown]
  - Respiratory tract congestion [Unknown]
  - Fatigue [Unknown]
  - Pyrexia [Unknown]
  - Depression [Unknown]
  - Tachycardia [Unknown]
  - Rhonchi [Unknown]
  - Pulmonary fibrosis [Unknown]
  - Lung disorder [Unknown]
  - Granuloma [Unknown]
  - Thyroid neoplasm [Unknown]
  - Aortic arteriosclerosis [Unknown]
  - Arteriosclerosis coronary artery [Unknown]
  - Aortic aneurysm [Unknown]
  - Osteoarthritis [Unknown]
  - Osteoarthritis [Unknown]
  - Sinus disorder [Unknown]
  - Inflammation [Unknown]
  - Rotator cuff syndrome [Unknown]
  - Osteoarthritis [Unknown]
  - Large intestine polyp [Unknown]
  - Dizziness [Unknown]
  - Facial wasting [Unknown]
  - Haemorrhoids [Unknown]
  - Prostatomegaly [Unknown]
  - Blood glucose increased [Unknown]
  - Upper respiratory tract infection [Unknown]
  - Epigastric discomfort [Unknown]
